FAERS Safety Report 5641218-X (Version None)
Quarter: 2008Q1

REPORT INFORMATION
  Report Type: 
  Country: None (occurrence: None)
  Receive Date: 20080227
  Receipt Date: 20070322
  Transmission Date: 20080703
  Serious: No
  Sender: FDA-Public Use
  Company Number: A0644023A

PATIENT
  Age: 57 Year
  Sex: Male

DRUGS (2)
  1. NICORETTE [Suspect]
     Indication: TOBACCO USER
     Dates: start: 20070321
  2. NICORETTE [Suspect]
     Indication: TOBACCO USER
     Dates: start: 20070321

REACTIONS (2)
  - HICCUPS [None]
  - INTENTIONAL DRUG MISUSE [None]
